FAERS Safety Report 6102533-9 (Version None)
Quarter: 2009Q1

REPORT INFORMATION
  Report Type: 
  Country: None (occurrence: None)
  Receive Date: 20090304
  Receipt Date: 20080804
  Transmission Date: 20090719
  Serious: No
  Sender: FDA-Public Use
  Company Number: A0740928A

PATIENT
  Age: 74 Year
  Sex: Female

DRUGS (8)
  1. REQUIP [Suspect]
     Indication: RESTLESS LEGS SYNDROME
     Dosage: .25MG PER DAY
     Route: 048
     Dates: start: 20060101, end: 20080601
  2. COUMADIN [Concomitant]
  3. FUROSEMIDE [Concomitant]
  4. SPIRONOLACTONE [Concomitant]
  5. CLONAZEPAM [Concomitant]
  6. METOLAZONE [Concomitant]
  7. SKELAXIN [Concomitant]
  8. POTASSIUM SUPPLEMENTS [Concomitant]

REACTIONS (1)
  - DRUG INEFFECTIVE [None]
